FAERS Safety Report 16400620 (Version 2)
Quarter: 2019Q2

REPORT INFORMATION
  Report Type: Spontaneous
  Country: CZ (occurrence: CZ)
  Receive Date: 20190606
  Receipt Date: 20190628
  Transmission Date: 20190711
  Serious: Yes (Death)
  Sender: FDA-Public Use
  Company Number: CZ-JNJFOC-20190601934

PATIENT
  Sex: Male

DRUGS (19)
  1. ISOPRENALINE [Suspect]
     Active Substance: ISOPROTERENOL HYDROCHLORIDE
     Indication: HYPOTENSION
  2. INFLIXIMAB [Suspect]
     Active Substance: INFLIXIMAB
     Indication: CONDITION AGGRAVATED
  3. INFLIXIMAB [Suspect]
     Active Substance: INFLIXIMAB
     Indication: NEUROLOGICAL SYMPTOM
  4. SOLU-MEDROL [Concomitant]
     Active Substance: METHYLPREDNISOLONE SODIUM SUCCINATE
     Indication: LANGUAGE DISORDER
     Dosage: 2 MG/KG, UNK
     Route: 042
     Dates: start: 20181210
  5. SUMETROLIM [Concomitant]
     Active Substance: SULFAMETHOXAZOLE\TRIMETHOPRIM
     Indication: PRODUCT USED FOR UNKNOWN INDICATION
     Dosage: UNK
     Route: 065
     Dates: start: 201812
  6. INFLIXIMAB [Suspect]
     Active Substance: INFLIXIMAB
     Indication: AREFLEXIA
     Route: 042
     Dates: start: 20181215
  7. INFLIXIMAB [Suspect]
     Active Substance: INFLIXIMAB
     Indication: PARAESTHESIA
  8. INFLIXIMAB [Suspect]
     Active Substance: INFLIXIMAB
     Indication: GUILLAIN-BARRE SYNDROME
  9. FLUCONAZOLE. [Concomitant]
     Active Substance: FLUCONAZOLE
     Indication: PRODUCT USED FOR UNKNOWN INDICATION
     Route: 065
     Dates: start: 201812
  10. CABOZANTINIB [Concomitant]
     Active Substance: CABOZANTINIB
     Indication: RENAL CANCER
     Dosage: UNK
     Route: 065
     Dates: start: 201807
  11. SUNITINIB [Concomitant]
     Active Substance: SUNITINIB
     Indication: RENAL CANCER
     Dosage: UNK
     Route: 065
     Dates: start: 201711
  12. ISOPRENALINE [Suspect]
     Active Substance: ISOPROTERENOL HYDROCHLORIDE
     Indication: BRADYCARDIA
     Dosage: UNK
     Route: 065
     Dates: start: 201812
  13. ISOPRENALINE [Suspect]
     Active Substance: ISOPROTERENOL HYDROCHLORIDE
     Indication: MUSCULAR WEAKNESS
  14. NIVOLUMAB [Concomitant]
     Active Substance: NIVOLUMAB
     Indication: RENAL CANCER
     Route: 065
     Dates: start: 201811
  15. CEFUROXIME. [Concomitant]
     Active Substance: CEFUROXIME
     Indication: PRODUCT USED FOR UNKNOWN INDICATION
     Dosage: UNK
     Route: 065
     Dates: start: 201812
  16. ATEZOLIZUMAB. [Concomitant]
     Active Substance: ATEZOLIZUMAB
     Indication: RENAL CANCER
     Dosage: UNK
     Route: 065
  17. INFLIXIMAB, RECOMBINANT [Suspect]
     Active Substance: INFLIXIMAB
     Indication: PRODUCT USED FOR UNKNOWN INDICATION
     Route: 042
  18. SOLU-MEDROL [Concomitant]
     Active Substance: METHYLPREDNISOLONE SODIUM SUCCINATE
     Dosage: 1 MG/KG, UNK
     Route: 042
     Dates: start: 201812
  19. CLARITHROMYCIN. [Concomitant]
     Active Substance: CLARITHROMYCIN
     Indication: BRONCHITIS
     Dosage: UNK
     Route: 065
     Dates: start: 201812

REACTIONS (1)
  - Drug ineffective [Fatal]
